FAERS Safety Report 19968510 (Version 1)
Quarter: 2021Q4

REPORT INFORMATION
  Report Type: Spontaneous
  Country: US (occurrence: US)
  Receive Date: 20211018
  Receipt Date: 20211018
  Transmission Date: 20220303
  Serious: Yes (Hospitalization)
  Sender: FDA-Public Use
  Company Number: None

PATIENT
  Sex: Female

DRUGS (3)
  1. RINVOQ [Suspect]
     Active Substance: UPADACITINIB
     Indication: Rheumatoid arthritis
     Route: 048
     Dates: start: 202104
  2. RINVOQ [Suspect]
     Active Substance: UPADACITINIB
     Indication: Asthma
  3. RINVOQ [Suspect]
     Active Substance: UPADACITINIB
     Indication: Immunodeficiency common variable

REACTIONS (4)
  - Infection [None]
  - Pulmonary amyloidosis [None]
  - Pneumonia [None]
  - Myocardial infarction [None]
